FAERS Safety Report 6362086-7 (Version None)
Quarter: 2009Q3

REPORT INFORMATION
  Report Type: 
  Country: None (occurrence: None)
  Receive Date: 20090918
  Receipt Date: 20090915
  Transmission Date: 20100115
  Serious: Yes (Life-Threatening, Hospitalization)
  Sender: FDA-Public Use
  Company Number: PHEH2009US09622

PATIENT
  Sex: Female
  Weight: 58.05 kg

DRUGS (4)
  1. RECLAST [Suspect]
     Dosage: 5 MG, ONCE/SINGLE
     Dates: start: 20090819, end: 20090819
  2. SIMVASTATIN [Concomitant]
     Indication: HYPERLIPIDAEMIA
     Dosage: 400 MG, QD
     Route: 048
  3. ZOVIRAX [Concomitant]
     Dosage: 800 MG, QID
     Route: 048
  4. SOLU-MEDROL [Concomitant]
     Indication: MULTIPLE SCLEROSIS
     Dosage: 500 MG FOR THREE DAYS EVERY OTHER MONTH
     Route: 042

REACTIONS (4)
  - ARTHRITIS [None]
  - CHILLS [None]
  - MONOPLEGIA [None]
  - NONSPECIFIC REACTION [None]
